FAERS Safety Report 7396031-2 (Version None)
Quarter: 2011Q1

REPORT INFORMATION
  Report Type: 
  Country: None (occurrence: None)
  Receive Date: 20110325
  Receipt Date: 20110310
  Transmission Date: 20110831
  Serious: Yes (Death)
  Sender: FDA-Public Use
  Company Number: 2011030077

PATIENT
  Age: 81 Year
  Sex: Female
  Weight: 104 kg

DRUGS (11)
  1. FLUIMUCIL (ACETYLCYSTEINE) [Concomitant]
  2. TOREM (TORASEMIDE) [Suspect]
     Dosage: 60 MG (20 MG,3 IN 1 D),INTRAVENOUS BOLUS
     Route: 040
     Dates: start: 20110207, end: 20110211
  3. ASPEGIC (ACETYLSALICYLATE LYSINE) [Concomitant]
  4. BISOPROLOL FUMARATE [Concomitant]
  5. PANTOZOL (PANTOPRAZOLE SODIUM SESQUIHYDRATE) [Concomitant]
  6. XENETIX (IOBITRIDOL) [Suspect]
     Indication: DIAGNOSTIC PROCEDURE
     Dosage: 300 MG (300 MG,1 IN 1 D),INTRAVENOUS BOLUS
     Route: 040
     Dates: start: 20110208, end: 20110208
  7. CONVERSUM N COMBI(INDAPAMIDE, PERINDOPRIL ARGININE) [Concomitant]
  8. BELOC (ATENOLOL) [Concomitant]
  9. PERFALGAN (PARACETAMOL) [Concomitant]
  10. ACTRAPID (INSULIN HUMAN) [Concomitant]
  11. HUMALOG [Concomitant]

REACTIONS (21)
  - RENAL ATROPHY [None]
  - ACUTE MYOCARDIAL INFARCTION [None]
  - NEPHROTIC SYNDROME [None]
  - DIALYSIS [None]
  - ARRHYTHMIA [None]
  - ARTERIOSCLEROSIS CORONARY ARTERY [None]
  - NEPHROPATHY TOXIC [None]
  - PULMONARY CONGESTION [None]
  - TACHYCARDIA [None]
  - TACHYPNOEA [None]
  - RENAL ARTERY ARTERIOSCLEROSIS [None]
  - RENAL FAILURE ACUTE [None]
  - RENAL INFARCT [None]
  - FAT EMBOLISM [None]
  - INTERCAPILLARY GLOMERULOSCLEROSIS [None]
  - CARDIAC FAILURE [None]
  - PLEURAL EFFUSION [None]
  - RENAL CYST [None]
  - DEHYDRATION [None]
  - CORONARY ARTERY STENOSIS [None]
  - ARTERIAL FIBROSIS [None]
